FAERS Safety Report 6533208-X (Version None)
Quarter: 2010Q1

REPORT INFORMATION
  Report Type: 
  Country: None (occurrence: None)
  Receive Date: 20100111
  Receipt Date: 20100104
  Transmission Date: 20100710
  Serious: Yes (Death)
  Sender: FDA-Public Use
  Company Number: US-PFIZER INC-2010001003

PATIENT
  Age: 59 Year
  Sex: Male

DRUGS (7)
  1. ALPRAZOLAM [Suspect]
     Route: 048
  2. DILTIAZEM HCL [Suspect]
     Route: 048
  3. MORPHINE HCL ELIXIR [Suspect]
     Route: 048
  4. ACETYLSALICYLIC ACID [Suspect]
     Route: 048
  5. ESOMEPRAZOLE [Suspect]
     Route: 048
  6. SOTALOL [Suspect]
     Route: 048
  7. HYDROMORPHONE [Suspect]
     Route: 048

REACTIONS (1)
  - COMPLETED SUICIDE [None]
